FAERS Safety Report 9411767 (Version 2)
Quarter: 2013Q3

REPORT INFORMATION
  Report Type: Spontaneous
  Country: US (occurrence: US)
  Receive Date: 20130722
  Receipt Date: 20130902
  Transmission Date: 20140515
  Serious: Yes (Death, Other)
  Sender: FDA-Public Use
  Company Number: US-PFIZER INC-2013210903

PATIENT
  Age: 74 Year
  Sex: Female
  Weight: 61.22 kg

DRUGS (15)
  1. SUTENT [Suspect]
     Indication: PANCREATIC NEUROENDOCRINE TUMOUR
     Dosage: 37.5 MG, UNK
     Route: 048
     Dates: start: 20130225
  2. SUTENT [Suspect]
     Indication: PANCREATIC CARCINOMA
  3. ZIAC [Concomitant]
     Dosage: 2.5MG-6.25MG, 2X/DAY
     Route: 048
  4. LEVOXYL [Concomitant]
     Dosage: 25 UG, DAILY
     Route: 048
  5. LEXAPRO [Concomitant]
     Dosage: 10 MG, 1X/DAY
     Route: 048
  6. ALEVE [Concomitant]
     Dosage: UNK
  7. TIMOLOL [Concomitant]
     Dosage: UNK
  8. XALATAN [Concomitant]
     Dosage: 1 GTT (0.005%), BEDTIME (BOTH EYES)
     Route: 047
  9. VITAMIN D [Concomitant]
     Dosage: UNK
  10. LOW DOSE ASPIRIN [Concomitant]
     Dosage: 81 MG, 1X/DAY
     Route: 048
  11. FISH OIL [Concomitant]
     Dosage: 1000 MG, 1X/DAY
     Route: 048
  12. LANTUS [Concomitant]
     Dosage: 10 UNIT (100UNIT/ML), BEDTIME
     Route: 058
  13. MEGACE [Concomitant]
     Dosage: 800 MG, 1X/DAY
     Route: 048
  14. MAGIC MOUTHWASH [Concomitant]
     Dosage: 1-2 TBLSP, 4X/DAY AC. HS
     Route: 048
  15. DYAZIDE [Concomitant]
     Dosage: 37.5MG-25MG, DAILY
     Route: 048

REACTIONS (14)
  - Pleural effusion [Unknown]
  - Ascites [Unknown]
  - Hiatus hernia [Unknown]
  - Stomatitis [Unknown]
  - Sepsis [Fatal]
  - Septic shock [Fatal]
  - Respiratory failure [Fatal]
  - Cardiac arrest [Fatal]
  - Gas gangrene [Fatal]
  - Clostridial infection [Fatal]
  - Anaemia [Unknown]
  - Thrombocytopenia [Unknown]
  - Metabolic acidosis [Unknown]
  - Pulmonary oedema [Unknown]
